FAERS Safety Report 19486106 (Version 1)
Quarter: 2021Q3

REPORT INFORMATION
  Report Type: Report from Study
  Country: BE (occurrence: BE)
  Receive Date: 20210702
  Receipt Date: 20210702
  Transmission Date: 20211014
  Serious: Yes (Death, Other)
  Sender: FDA-Public Use
  Company Number: BE-PFIZER INC-2021781541

PATIENT
  Age: 82 Year
  Sex: Male
  Weight: 73 kg

DRUGS (10)
  1. MOVICOL NEUTRAL [Concomitant]
     Active Substance: POLYETHYLENE GLYCOL 3350\POTASSIUM CHLORIDE\SODIUM BICARBONATE\SODIUM CHLORIDE
     Dosage: 1 DF, 1X/DAY
  2. D?CURE [Concomitant]
     Active Substance: CHOLECALCIFEROL
     Dosage: 25000 EQ, 1X EVERY 2 WEEKS
  3. TAFAMIDIS [Suspect]
     Active Substance: TAFAMIDIS MEGLUMINE
     Dosage: 61 MG, DAILY
     Dates: start: 20200929
  4. BURINEX [Concomitant]
     Active Substance: BUMETANIDE
     Dosage: 2.5 MG, 1X/DAY (8H)
  5. ALDACTONE [Concomitant]
     Active Substance: SPIRONOLACTONE
     Dosage: 25 MG
  6. JANUVIA [Concomitant]
     Active Substance: SITAGLIPTIN PHOSPHATE
     Dosage: 25 MG, 1X/DAY
  7. PROMAGNOR [Concomitant]
     Active Substance: MAGNESIUM
     Dosage: 1 DF, 1X/DAY
  8. NOVOMIX [Concomitant]
     Active Substance: INSULIN ASPART
     Dosage: 18 EQ, 1X/DAY (8H)
     Route: 058
  9. NOVOMIX [Concomitant]
     Active Substance: INSULIN ASPART
     Dosage: 14 EQ, 1X/DAY (8H)
     Route: 058
  10. RAMIPRIL EG [Concomitant]
     Active Substance: RAMIPRIL
     Dosage: 2.5 MG

REACTIONS (4)
  - Atrial flutter [Unknown]
  - Bradycardia [Unknown]
  - Death [Fatal]
  - Presyncope [Unknown]

NARRATIVE: CASE EVENT DATE: 202102
